FAERS Safety Report 22321015 (Version 3)
Quarter: 2023Q2

REPORT INFORMATION
  Report Type: Spontaneous
  Country: US (occurrence: US)
  Receive Date: 20230515
  Receipt Date: 20230518
  Transmission Date: 20230721
  Serious: Yes (Disabling)
  Sender: FDA-Public Use
  Company Number: US-009507513-2305USA004560

PATIENT
  Age: 55 Year
  Sex: Female
  Weight: 136.05 kg

DRUGS (5)
  1. KEYTRUDA [Suspect]
     Active Substance: PEMBROLIZUMAB
     Indication: Endometrial cancer recurrent
     Dosage: 200 MILLIGRAM, Q3W
     Route: 042
     Dates: start: 202211
  2. LENVATINIB MESYLATE [Suspect]
     Active Substance: LENVATINIB MESYLATE
     Indication: Endometrial cancer recurrent
     Dosage: 14 MILLIGRAM, QD
     Route: 048
     Dates: start: 202211
  3. TRAMADOL [Suspect]
     Active Substance: TRAMADOL
     Dosage: UNK
     Dates: start: 2023
  4. OXYCODONE [Suspect]
     Active Substance: OXYCODONE
     Dosage: UNK
     Dates: start: 2023
  5. LASIX [Concomitant]
     Active Substance: FUROSEMIDE

REACTIONS (13)
  - Bone pain [Unknown]
  - Pain in extremity [Unknown]
  - Myalgia [Unknown]
  - Muscle tightness [Unknown]
  - Gait disturbance [Unknown]
  - Fluid retention [Unknown]
  - Oedema [Unknown]
  - Asthenia [Unknown]
  - Drug ineffective [Unknown]
  - Sedation [Unknown]
  - Loss of therapeutic response [Unknown]
  - Pain [Unknown]
  - Product use in unapproved indication [Unknown]

NARRATIVE: CASE EVENT DATE: 20221101
